FAERS Safety Report 10004976 (Version 1)
Quarter: 2014Q1

REPORT INFORMATION
  Report Type: Spontaneous
  Country: US (occurrence: US)
  Receive Date: 20140312
  Receipt Date: 20140312
  Transmission Date: 20141002
  Serious: No
  Sender: FDA-Public Use
  Company Number: US-INCYTE CORPORATION-2013IN003105

PATIENT
  Sex: Female
  Weight: 61.22 kg

DRUGS (11)
  1. JAKAFI [Suspect]
     Indication: MYELOFIBROSIS
     Dosage: 20 MG, BID
     Route: 048
     Dates: start: 20131111
  2. GUAIFENESIN DM [Concomitant]
  3. PROBIOTIC                          /06395501/ [Concomitant]
  4. CENTRUM                            /02217401/ [Concomitant]
  5. TYLENOL                            /00020001/ [Concomitant]
  6. SIMVASTATIN [Concomitant]
  7. NORVASC [Concomitant]
  8. HYDROCHLOROTHIAZIDE [Concomitant]
  9. LISINOPRIL [Concomitant]
  10. ANAGRELIDE HCL [Concomitant]
  11. CALCIUM + VITAMIN D [Concomitant]

REACTIONS (1)
  - Respiratory tract congestion [Unknown]
